FAERS Safety Report 16788026 (Version 1)
Quarter: 2019Q3

REPORT INFORMATION
  Report Type: Spontaneous
  Country: ES (occurrence: ES)
  Receive Date: 20190909
  Receipt Date: 20190909
  Transmission Date: 20191005
  Serious: Yes (Hospitalization)
  Sender: FDA-Public Use
  Company Number: PHHY2019ES205521

PATIENT
  Age: 36 Year
  Sex: Male

DRUGS (1)
  1. IBUPROFENO [Suspect]
     Active Substance: IBUPROFEN
     Indication: OTITIS MEDIA
     Dosage: 600 MG, Q8H
     Route: 048
     Dates: start: 20190823, end: 20190824

REACTIONS (2)
  - Gastrointestinal haemorrhage [Recovering/Resolving]
  - Syncope [Recovering/Resolving]

NARRATIVE: CASE EVENT DATE: 20190824
